FAERS Safety Report 22332270 (Version 2)
Quarter: 2023Q2

REPORT INFORMATION
  Report Type: Spontaneous
  Country: JP (occurrence: JP)
  Receive Date: 20230517
  Receipt Date: 20230630
  Transmission Date: 20230721
  Serious: No
  Sender: FDA-Public Use
  Company Number: JP-PFIZER INC-PV202300082651

PATIENT

DRUGS (2)
  1. GENOTROPIN [Suspect]
     Active Substance: SOMATROPIN
     Dosage: 0.4 MG, 5 TIMES WEEKLY
  2. GENOTROPIN [Suspect]
     Active Substance: SOMATROPIN
     Dosage: 0.6 MG, WEEKLY (1 TIME WEEKLY)
     Route: 058

REACTIONS (2)
  - Device use issue [Unknown]
  - Drug dose omission by device [Unknown]
